FAERS Safety Report 16598121 (Version 2)
Quarter: 2019Q3

REPORT INFORMATION
  Report Type: Spontaneous
  Country: ES (occurrence: ES)
  Receive Date: 20190719
  Receipt Date: 20190723
  Transmission Date: 20191004
  Serious: Yes (Hospitalization)
  Sender: FDA-Public Use
  Company Number: ES-PFIZER INC-2019305816

PATIENT
  Age: 38 Year
  Sex: Female

DRUGS (4)
  1. PREDNISONE. [Suspect]
     Active Substance: PREDNISONE
     Indication: VOGT-KOYANAGI-HARADA DISEASE
     Dosage: 10 MG, 1X/DAY
     Route: 048
     Dates: start: 20180907, end: 20190416
  2. CELESTONE CRONODOSE [Suspect]
     Active Substance: BETAMETHASONE
     Indication: IMMATURE RESPIRATORY SYSTEM
     Dosage: 12 MG, UNK
     Route: 030
     Dates: start: 20190206, end: 20190207
  3. METHYLPREDNISOLONE SODIUM SUCCINATE. [Suspect]
     Active Substance: METHYLPREDNISOLONE SODIUM SUCCINATE
     Dosage: 1 G, 1X/DAY
     Route: 042
     Dates: start: 20180913, end: 20180915
  4. METHYLPREDNISOLONE SODIUM SUCCINATE. [Suspect]
     Active Substance: METHYLPREDNISOLONE SODIUM SUCCINATE
     Indication: VOGT-KOYANAGI-HARADA DISEASE
     Dosage: 500 UNK, 1X/DAY
     Route: 042
     Dates: start: 20180905, end: 20180907

REACTIONS (3)
  - Off label use [Unknown]
  - Product use in unapproved indication [Unknown]
  - Gestational diabetes [Recovered/Resolved]

NARRATIVE: CASE EVENT DATE: 20180905
